FAERS Safety Report 5101279-3 (Version None)
Quarter: 2006Q3

REPORT INFORMATION
  Report Type: 
  Country: None (occurrence: None)
  Receive Date: 20060911
  Receipt Date: 20060831
  Transmission Date: 20061208
  Serious: Yes (Hospitalization)
  Sender: FDA-Public Use
  Company Number: DE-JNJFOC-20060901853

PATIENT

DRUGS (1)
  1. REMICADE [Suspect]
     Indication: DRUG USE FOR UNKNOWN INDICATION
     Dosage: 2 INFUSIONS
     Route: 042

REACTIONS (2)
  - DYSPNOEA [None]
  - PNEUMOCYSTIS JIROVECI PNEUMONIA [None]
